FAERS Safety Report 9755787 (Version 1)
Quarter: 2013Q4

REPORT INFORMATION
  Report Type: Spontaneous
  Country: US (occurrence: US)
  Receive Date: 20131213
  Receipt Date: 20131213
  Transmission Date: 20140711
  Serious: No
  Sender: FDA-Public Use
  Company Number: US-GLAXOSMITHKLINE-A1024124A

PATIENT
  Age: 66 Year
  Sex: Female

DRUGS (5)
  1. NICODERM CQ CLEAR 14MG [Suspect]
     Indication: EX-TOBACCO USER
     Dates: start: 20130308, end: 20130507
  2. NICODERM CQ CLEAR 21MG [Suspect]
     Indication: EX-TOBACCO USER
     Dates: start: 20130308, end: 20130507
  3. NICORETTE OTC 4MG [Suspect]
     Indication: EX-TOBACCO USER
  4. THYROID MEDICATION [Concomitant]
  5. BLOOD PRESSURE MEDICATION [Concomitant]

REACTIONS (6)
  - Application site reaction [Not Recovered/Not Resolved]
  - Application site erythema [Not Recovered/Not Resolved]
  - Application site swelling [Not Recovered/Not Resolved]
  - Application site warmth [Not Recovered/Not Resolved]
  - Drug administration error [Unknown]
  - Nausea [Recovered/Resolved]
